FAERS Safety Report 9701044 (Version 1)
Quarter: 2013Q4

REPORT INFORMATION
  Report Type: Spontaneous
  Country: US (occurrence: None)
  Receive Date: 20131120
  Receipt Date: 20131120
  Transmission Date: 20140711
  Serious: No
  Sender: FDA-Public Use
  Company Number: None

PATIENT
  Age: 73 Year
  Sex: Male

DRUGS (11)
  1. NEUPRO [Suspect]
     Indication: PARKINSON^S DISEASE
     Route: 061
     Dates: start: 20130822
  2. PEPCID [Concomitant]
  3. VITE [Concomitant]
  4. DEPAKOTE [Concomitant]
  5. NORVASC [Concomitant]
  6. ASA [Concomitant]
  7. ZOLOFT [Concomitant]
  8. PLAVIX [Concomitant]
  9. LOPRESSOR [Concomitant]
  10. LACTULOSE [Concomitant]
  11. ARICENT [Concomitant]

REACTIONS (1)
  - Application site burn [None]
